FAERS Safety Report 23944638 (Version 1)
Quarter: 2024Q2

REPORT INFORMATION
  Report Type: Spontaneous
  Country: ZA (occurrence: None)
  Receive Date: 20240606
  Receipt Date: 20240606
  Transmission Date: 20240716
  Serious: Yes (Hospitalization)
  Sender: FDA-Public Use
  Company Number: 2024A127664

PATIENT
  Age: 96 Year
  Sex: Male

DRUGS (3)
  1. BUDESONIDE\FORMOTEROL FUMARATE DIHYDRATE [Suspect]
     Active Substance: BUDESONIDE\FORMOTEROL FUMARATE DIHYDRATE
     Indication: Asthma
     Dosage: 120 DOSE 160/4.5 MCG, UNKNOWN UNKNOWN
     Route: 055
  2. LASIX [Concomitant]
     Active Substance: FUROSEMIDE
     Indication: Hypertension
  3. ASPIRIN [Concomitant]
     Active Substance: ASPIRIN
     Indication: Blood test

REACTIONS (1)
  - COVID-19 [Unknown]
